FAERS Safety Report 12241469 (Version 3)
Quarter: 2016Q2

REPORT INFORMATION
  Report Type: Spontaneous
  Country: US (occurrence: US)
  Receive Date: 20160406
  Receipt Date: 20160415
  Transmission Date: 20160815
  Serious: Yes (Other)
  Sender: FDA-Public Use
  Company Number: US-HORIZON-RAV-0068-2016

PATIENT
  Age: 21 Year
  Sex: Male

DRUGS (3)
  1. RAVICTI [Suspect]
     Active Substance: GLYCEROL PHENYLBUTYRATE
     Indication: UREA CYCLE ENZYME DEFICIENCY
     Dosage: 5 ML THREE TIMES DAILY
     Dates: start: 201412
  2. CITRULLINE [Concomitant]
     Active Substance: CITRULLINE
  3. ARGININE [Concomitant]
     Active Substance: ARGININE

REACTIONS (2)
  - Constipation [Unknown]
  - Haematochezia [Recovered/Resolved]

NARRATIVE: CASE EVENT DATE: 20160329
